FAERS Safety Report 24323585 (Version 1)
Quarter: 2024Q3

REPORT INFORMATION
  Report Type: Spontaneous
  Country: US (occurrence: None)
  Receive Date: 20240913
  Receipt Date: 20240913
  Transmission Date: 20241016
  Serious: Yes (Other)
  Sender: Public
  Company Number: None

PATIENT
  Age: 7 Year
  Sex: Male
  Weight: 21.15 kg

DRUGS (1)
  1. QELBREE [Suspect]
     Active Substance: VILOXAZINE HYDROCHLORIDE
     Indication: Attention deficit hyperactivity disorder
     Dosage: 2 CAPSULES ORAL
     Route: 048
     Dates: start: 20240826

REACTIONS (2)
  - Skin odour abnormal [None]
  - Skin odour abnormal [None]

NARRATIVE: CASE EVENT DATE: 20240901
